FAERS Safety Report 13247957 (Version 3)
Quarter: 2017Q1

REPORT INFORMATION
  Report Type: Report from Study
  Country: US (occurrence: US)
  Receive Date: 20170217
  Receipt Date: 20170317
  Transmission Date: 20170428
  Serious: Yes (Other)
  Sender: FDA-Public Use
  Company Number: US-APOPHARMA-2017AP006649

PATIENT
  Age: 53 Year
  Sex: Female
  Weight: 62 kg

DRUGS (9)
  1. VITAMIN D                          /00107901/ [Concomitant]
     Active Substance: ERGOCALCIFEROL
     Indication: PRODUCT USED FOR UNKNOWN INDICATION
     Dosage: UNK, UNKNOWN
     Route: 065
  2. COLACE [Concomitant]
     Active Substance: DOCUSATE SODIUM
     Indication: PRODUCT USED FOR UNKNOWN INDICATION
     Dosage: UNK, UNKNOWN
     Route: 065
  3. ATENOLOL. [Concomitant]
     Active Substance: ATENOLOL
     Indication: HYPERTENSION
     Dosage: 25 MG, UNKNOWN
     Route: 048
  4. OSPHENA [Concomitant]
     Active Substance: OSPEMIFENE
     Indication: MENOPAUSE
     Dosage: 60 MG, UNKNOWN
     Route: 048
  5. PAXIL [Concomitant]
     Active Substance: PAROXETINE HYDROCHLORIDE
     Indication: DEPRESSION
     Dosage: 20 MG, UNKNOWN
     Route: 048
  6. SPIRONOLACTONE. [Concomitant]
     Active Substance: SPIRONOLACTONE
     Indication: PRODUCT USED FOR UNKNOWN INDICATION
     Dosage: UNK, UNKNOWN
     Route: 065
  7. FERRIPROX [Suspect]
     Active Substance: DEFERIPRONE
     Indication: THALASSAEMIA BETA
     Dosage: 26 MG/KG, TID
     Route: 048
     Dates: start: 20160516, end: 20170207
  8. FERRIPROX [Suspect]
     Active Substance: DEFERIPRONE
     Indication: HAEMOCHROMATOSIS
  9. NEXIUM [Concomitant]
     Active Substance: ESOMEPRAZOLE MAGNESIUM
     Indication: GASTROOESOPHAGEAL REFLUX DISEASE
     Dosage: 40 MG, UNKNOWN
     Route: 048

REACTIONS (1)
  - Neutropenia [Recovered/Resolved]

NARRATIVE: CASE EVENT DATE: 20170207
